FAERS Safety Report 9842146 (Version 2)
Quarter: 2014Q2

REPORT INFORMATION
  Report Type: Spontaneous
  Country: US (occurrence: US)
  Receive Date: 20140124
  Receipt Date: 20140515
  Transmission Date: 20141212
  Serious: No
  Sender: FDA-Public Use
  Company Number: US-009507513-1401USA010879

PATIENT
  Age: 75 Year
  Sex: Female
  Weight: 45.81 kg

DRUGS (3)
  1. OXYTROL FOR WOMEN [Suspect]
     Indication: NOCTURIA
     Dosage: 1 DF, QD
     Route: 062
     Dates: start: 201402
  2. NASONEX [Concomitant]
     Indication: HYPERSENSITIVITY
     Dosage: UNK, UNKNOWN
  3. ZYRTEC [Concomitant]
     Indication: HYPERSENSITIVITY
     Dosage: UNK, UNKNOWN

REACTIONS (2)
  - Lethargy [Recovered/Resolved]
  - Drug effect increased [Unknown]
